FAERS Safety Report 7222078-2 (Version None)
Quarter: 2011Q1

REPORT INFORMATION
  Report Type: 
  Country: None (occurrence: None)
  Receive Date: 20110112
  Receipt Date: 20110104
  Transmission Date: 20110831
  Serious: Yes (Hospitalization)
  Sender: FDA-Public Use
  Company Number: US-JNJFOC-20110100769

PATIENT
  Sex: Male
  Weight: 91.17 kg

DRUGS (7)
  1. PREDNISONE [Concomitant]
     Dosage: TAPERING
     Route: 065
  2. THALIDOMIDE [Concomitant]
     Indication: CROHN'S DISEASE
     Route: 065
  3. LISINOPRIL [Concomitant]
     Indication: HYPERTENSION
     Route: 065
  4. LIALDA [Concomitant]
     Indication: CROHN'S DISEASE
     Dosage: TOTAL DAILY DOSE 4.8 G
     Route: 065
  5. NYSTATIN [Concomitant]
     Indication: CROHN'S DISEASE
     Route: 065
  6. REMICADE [Suspect]
     Indication: CROHN'S DISEASE
     Dosage: 53 TOTAL INFUSIONS
     Route: 042
  7. MERCAPTOPURINE [Concomitant]
     Indication: CROHN'S DISEASE
     Route: 065

REACTIONS (3)
  - CROHN'S DISEASE [None]
  - HISTOPLASMOSIS [None]
  - JEJUNAL PERFORATION [None]
